FAERS Safety Report 16267341 (Version 3)
Quarter: 2019Q2

REPORT INFORMATION
  Report Type: Report from Study
  Country: US (occurrence: US)
  Receive Date: 20190502
  Receipt Date: 20190621
  Transmission Date: 20190711
  Serious: Yes (Hospitalization)
  Sender: FDA-Public Use
  Company Number: US-BAXTER-2019BAX008476

PATIENT
  Age: 55 Year
  Sex: Female
  Weight: 100.4 kg

DRUGS (25)
  1. MESNEX [Suspect]
     Active Substance: MESNA
     Indication: PRODUCT USED FOR UNKNOWN INDICATION
     Dosage: COURSE 1 OF MINI-HYPERCVD
     Route: 065
     Dates: start: 201811, end: 201812
  2. SPRYCEL [Concomitant]
     Active Substance: DASATINIB
     Dosage: BMS-354825, COURSE 2 OF MINI-HYPERCVD
     Route: 065
     Dates: start: 201812, end: 201901
  3. SPRYCEL [Concomitant]
     Active Substance: DASATINIB
     Dosage: BMS-354825, COURSE 3 OF MINI-HYPERCVD
     Route: 065
     Dates: start: 201901, end: 201902
  4. METHOTREXATE. [Concomitant]
     Active Substance: METHOTREXATE
     Indication: PRODUCT USED FOR UNKNOWN INDICATION
     Dosage: INDUCTION THERAPY
     Route: 065
     Dates: start: 201809, end: 201811
  5. METHOTREXATE. [Concomitant]
     Active Substance: METHOTREXATE
     Dosage: COURSE 2 OF MINI-HYPERCVD
     Route: 065
     Dates: start: 201812, end: 201901
  6. VINCRISTINE SULFATE. [Concomitant]
     Active Substance: VINCRISTINE SULFATE
     Dosage: COURSE 3 OF MINI-HYPERCVD
     Route: 065
     Dates: start: 201901, end: 201902
  7. METHYLPREDNISOLONE. [Concomitant]
     Active Substance: METHYLPREDNISOLONE
     Indication: PRODUCT USED FOR UNKNOWN INDICATION
     Dosage: COURSE 2 OF MINI-HYPERCVD
     Route: 065
     Dates: start: 201812, end: 201901
  8. MESNEX [Suspect]
     Active Substance: MESNA
     Dosage: COURSE 3 OF MINI-HYPERCVD
     Route: 065
     Dates: start: 201901, end: 201902
  9. SPRYCEL [Concomitant]
     Active Substance: DASATINIB
     Dosage: BMS-354825, COURSE 1 OF MINI-HYPERCVD
     Route: 065
     Dates: start: 201811, end: 201812
  10. METHOTREXATE. [Concomitant]
     Active Substance: METHOTREXATE
     Dosage: COURSE 1 OF MINI-HYPERCVD
     Route: 065
     Dates: start: 201811, end: 201812
  11. DEXAMETHASONE. [Concomitant]
     Active Substance: DEXAMETHASONE
     Dosage: COURSE 3 OF MINI-HYPERCVD
     Route: 065
     Dates: start: 201901, end: 201902
  12. CYTARABINE. [Concomitant]
     Active Substance: CYTARABINE
     Indication: PRODUCT USED FOR UNKNOWN INDICATION
     Dosage: COURSE 1 OF MINI-HYPERCVD
     Route: 065
     Dates: start: 201811, end: 201812
  13. CYTARABINE. [Concomitant]
     Active Substance: CYTARABINE
     Dosage: COURSE 2 OF MINI-HYPERCVD
     Route: 065
     Dates: start: 201812, end: 201901
  14. VINCRISTINE SULFATE. [Suspect]
     Active Substance: VINCRISTINE SULFATE
     Indication: B PRECURSOR TYPE ACUTE LEUKAEMIA
     Dosage: ON DAY 1, TOTAL DOSE THIS COURSE WAS 2 MG, LAST DOSE PRIOR TO SAE ON 22MAR2019, CYCLE 1 AND 2
     Route: 042
     Dates: start: 20190222, end: 20190322
  15. INOTUZUMAB OZOGAMICIN [Suspect]
     Active Substance: INOTUZUMAB OZOGAMICIN
     Indication: B PRECURSOR TYPE ACUTE LEUKAEMIA
     Dosage: ON DAY 1, CYCLE 1
     Route: 042
     Dates: start: 20190222
  16. DEXAMETHASONE. [Concomitant]
     Active Substance: DEXAMETHASONE
     Indication: PRODUCT USED FOR UNKNOWN INDICATION
     Dosage: COURSE 1 OF MINI-HYPERCVD
     Route: 065
     Dates: start: 201811, end: 201812
  17. CYCLOPHOSPHAMIDE FOR INJECTION, USP [Suspect]
     Active Substance: CYCLOPHOSPHAMIDE
     Indication: B PRECURSOR TYPE ACUTE LEUKAEMIA
     Dosage: ON DAY 1, TOTAL DOSE IN THIS COURSE WAS 1628 MG, LAST DOSE PRIOR TO SAE ON 22MAR2019, CYCLE 1 AND 2
     Route: 042
     Dates: start: 20190222, end: 20190322
  18. VINCRISTINE SULFATE. [Concomitant]
     Active Substance: VINCRISTINE SULFATE
     Indication: PRODUCT USED FOR UNKNOWN INDICATION
     Dosage: COURSE 1 OF MINI-HYPERCVD
     Route: 065
     Dates: start: 201811, end: 201812
  19. CYCLOPHOSPHAMIDE FOR INJECTION, USP [Suspect]
     Active Substance: CYCLOPHOSPHAMIDE
     Dosage: COURSE 1 OF MINI-HYPERCVD
     Route: 065
     Dates: start: 201811, end: 201812
  20. METHOTREXATE. [Concomitant]
     Active Substance: METHOTREXATE
     Dosage: COURSE 3 OF MINI-HYPERCVD
     Route: 065
     Dates: start: 201901, end: 201902
  21. CYCLOPHOSPHAMIDE FOR INJECTION, USP [Suspect]
     Active Substance: CYCLOPHOSPHAMIDE
     Dosage: COURSE 3 OF MINI-HYPERCVD
     Route: 065
     Dates: start: 201901, end: 201902
  22. INOTUZUMAB OZOGAMICIN [Suspect]
     Active Substance: INOTUZUMAB OZOGAMICIN
     Dosage: ON DAY 8, DAY 15, TOTAL DOSE THIS COURSE WAS 2.83 MG, LAST DOSE PRIOR TO SAE ON 29MAR2019, CYCLE 2
     Route: 042
     Dates: end: 20190329
  23. PREDNISONE. [Suspect]
     Active Substance: PREDNISONE
     Indication: B PRECURSOR TYPE ACUTE LEUKAEMIA
     Dosage: ON DAYS 1-5, TOTAL DOSE THIS COURSE WAS 500 MG, LAST DOSE PRIOR TO SAE ON 26MAR2019, CYCLE 1 AND 2
     Route: 048
     Dates: start: 20190222, end: 20190326
  24. SPRYCEL [Concomitant]
     Active Substance: DASATINIB
     Indication: PRODUCT USED FOR UNKNOWN INDICATION
     Dosage: BMS-354825, INDUCTION THERAPY
     Route: 065
     Dates: start: 201809, end: 201811
  25. PREDNISONE. [Concomitant]
     Active Substance: PREDNISONE
     Indication: PRODUCT USED FOR UNKNOWN INDICATION
     Dosage: INDUCTION THERAPY
     Route: 065
     Dates: start: 201809, end: 201811

REACTIONS (2)
  - Encephalopathy [Recovered/Resolved]
  - Fatigue [Not Recovered/Not Resolved]

NARRATIVE: CASE EVENT DATE: 20190405
